FAERS Safety Report 15658871 (Version 1)
Quarter: 2018Q4

REPORT INFORMATION
  Report Type: Spontaneous
  Country: SE (occurrence: SE)
  Receive Date: 20181126
  Receipt Date: 20181126
  Transmission Date: 20190205
  Serious: Yes (Other)
  Sender: FDA-Public Use
  Company Number: SE-ROCHE-2220422

PATIENT
  Age: 39 Year
  Sex: Male

DRUGS (2)
  1. TELAPREVIR [Concomitant]
     Active Substance: TELAPREVIR
     Route: 065
  2. RIBAVIRIN. [Suspect]
     Active Substance: RIBAVIRIN
     Indication: HEPATITIS C
     Dosage: 1200 MG/24 HOURS
     Route: 048

REACTIONS (1)
  - Hepatitis C RNA increased [Unknown]
